FAERS Safety Report 6815040 (Version 16)
Quarter: 2012Q4

REPORT INFORMATION
  Report Type: 
  Country: CA (occurrence: CA)
  Receive Date: 20081118
  Receipt Date: 20121022
  Transmission Date: 20130627
  Serious: Yes (Death, Other)
  Sender: FDA-Public Use
  Company Number: PHHY2008CA00573

PATIENT
  Age: 79 Year
  Sex: Male

DRUGS (5)
  1. SANDOSTATIN LAR [Suspect]
     Indication: CARCINOID TUMOUR
     Route: 030
     Dates: start: 20070618, end: 20100616
  2. INSULIN [Concomitant]
  3. INSULIN [Concomitant]
     Route: 030
     Dates: start: 20080128
  4. GABAPENTIN [Concomitant]
     Dosage: 100 mg, TID
  5. GABAPENTIN [Concomitant]
     Dosage: 2 DF, TID

REACTIONS (22)
  - Road traffic accident [Fatal]
  - Renal impairment [Unknown]
  - Blood pressure increased [Unknown]
  - Paraesthesia [Unknown]
  - Loss of consciousness [Unknown]
  - Diabetic neuropathy [Unknown]
  - Computerised tomogram abnormal [Unknown]
  - Chest discomfort [Unknown]
  - Limb discomfort [Unknown]
  - Arthralgia [Unknown]
  - Flank pain [Unknown]
  - Heart rate increased [Unknown]
  - Nausea [Unknown]
  - Diarrhoea [Unknown]
  - Ear pain [Unknown]
  - Pain in extremity [Unknown]
  - Nasopharyngitis [Unknown]
  - Rash pruritic [Unknown]
  - Abdominal pain [Unknown]
  - Constipation [Unknown]
  - Vomiting [Unknown]
  - Blood glucose fluctuation [Unknown]
